FAERS Safety Report 7108861-2 (Version None)
Quarter: 2010Q4

REPORT INFORMATION
  Report Type: 
  Country: None (occurrence: None)
  Receive Date: 20101117
  Receipt Date: 20101110
  Transmission Date: 20110411
  Serious: Yes (Hospitalization, Other)
  Sender: FDA-Public Use
  Company Number: BR-ABBOTT-10P-020-0617501-00

PATIENT
  Sex: Female
  Weight: 70 kg

DRUGS (14)
  1. HUMIRA [Suspect]
     Indication: RHEUMATOID ARTHRITIS
     Route: 058
  2. PAROXETINE HCL [Concomitant]
     Indication: DEPRESSION
     Route: 048
  3. CALCORT [Concomitant]
     Indication: RHEUMATOID ARTHRITIS
     Route: 048
  4. CALCORT [Concomitant]
     Indication: PAIN
  5. SODIUM DICLOFENAC, CODEINE [Concomitant]
     Indication: RHEUMATOID ARTHRITIS
     Route: 048
  6. LYRICA [Concomitant]
     Indication: FIBROMYALGIA
     Route: 048
  7. LYRICA [Concomitant]
     Route: 048
  8. LYRICA [Concomitant]
     Route: 048
  9. TIZANIDINE HCL [Concomitant]
     Indication: MUSCLE RELAXANT THERAPY
     Route: 048
  10. CLONAZEPAM [Concomitant]
     Indication: INSOMNIA
     Route: 048
  11. DICLOFENAC;CODEINE PHOSPHATE (CODATEN) [Concomitant]
     Indication: PAIN
     Route: 048
  12. METHOTREXATE [Concomitant]
     Indication: ARTHRITIS
     Route: 048
  13. SIDARLUD [Concomitant]
     Indication: ANXIOLYTIC THERAPY
     Route: 048
  14. METICORTEN [Concomitant]
     Indication: RHEUMATOID ARTHRITIS
     Route: 048

REACTIONS (10)
  - BONE PAIN [None]
  - INJECTION SITE PAIN [None]
  - INJECTION SITE REACTION [None]
  - JOINT SWELLING [None]
  - MUSCULOSKELETAL PAIN [None]
  - NECK PAIN [None]
  - OEDEMA PERIPHERAL [None]
  - SPEECH DISORDER [None]
  - TENDON DISORDER [None]
  - TENDON RUPTURE [None]
